FAERS Safety Report 5602776-4 (Version None)
Quarter: 2008Q1

REPORT INFORMATION
  Report Type: 
  Country: None (occurrence: None)
  Receive Date: 20080125
  Receipt Date: 20080115
  Transmission Date: 20080703
  Serious: Yes (Hospitalization, Other)
  Sender: FDA-Public Use
  Company Number: US-ABBOTT-08P-163-0432509-00

PATIENT
  Sex: Female
  Weight: 72.64 kg

DRUGS (4)
  1. HUMIRA [Suspect]
     Indication: PSORIATIC ARTHROPATHY
     Route: 058
     Dates: end: 20070601
  2. HUMIRA [Suspect]
     Dates: end: 20070801
  3. ESCITALOPRAM OXALATE [Concomitant]
     Indication: ANTIDEPRESSANT THERAPY
  4. ESCITALOPRAM OXALATE [Concomitant]
     Indication: HORMONE THERAPY

REACTIONS (6)
  - FAT NECROSIS [None]
  - IMPAIRED HEALING [None]
  - PSORIATIC ARTHROPATHY [None]
  - SCIATICA [None]
  - WOUND [None]
  - WOUND DRAINAGE [None]
